FAERS Safety Report 6438289-X (Version None)
Quarter: 2009Q4

REPORT INFORMATION
  Report Type: 
  Country: None (occurrence: None)
  Receive Date: 20091112
  Receipt Date: 20091104
  Transmission Date: 20100525
  Serious: Yes (Hospitalization)
  Sender: FDA-Public Use
  Company Number: JP-JNJFOC-20091007786

PATIENT
  Age: 8 Year
  Sex: Female

DRUGS (3)
  1. TOPIRAMATE [Suspect]
     Indication: PARTIAL SEIZURES
     Route: 048
  2. VALPROATE SODIUM [Concomitant]
  3. PHENOBARBITAL [Concomitant]

REACTIONS (1)
  - STATUS EPILEPTICUS [None]
